FAERS Safety Report 8015816-2 (Version None)
Quarter: 2011Q4

REPORT INFORMATION
  Report Type: 
  Country: None (occurrence: None)
  Receive Date: 20111230
  Receipt Date: 20101110
  Transmission Date: 20120403
  Serious: Yes (Hospitalization, Other)
  Sender: FDA-Public Use
  Company Number: PHHY2010TW88235

PATIENT
  Sex: Male

DRUGS (3)
  1. GLEEVEC [Suspect]
     Dosage: 800 MG, UNK
     Route: 048
  2. GLEEVEC [Suspect]
     Dosage: 600 MG, UNK
     Route: 048
     Dates: start: 20101222, end: 20110201
  3. GLEEVEC [Suspect]
     Indication: GASTROINTESTINAL STROMAL TUMOUR
     Dosage: 400 MG, UNK
     Route: 048
     Dates: start: 20061117

REACTIONS (10)
  - ALTERED STATE OF CONSCIOUSNESS [None]
  - DYSURIA [None]
  - GASTROINTESTINAL STROMAL TUMOUR [None]
  - NEOPLASM MALIGNANT [None]
  - PYREXIA [None]
  - MALAISE [None]
  - GENE MUTATION IDENTIFICATION TEST POSITIVE [None]
  - CHROMATURIA [None]
  - BLOOD URINE [None]
  - ABDOMINAL PAIN [None]
